FAERS Safety Report 5350712-0 (Version None)
Quarter: 2007Q2

REPORT INFORMATION
  Report Type: 
  Country: None (occurrence: None)
  Receive Date: 20070608
  Receipt Date: 20070604
  Transmission Date: 20071010
  Serious: Yes (Life-Threatening)
  Sender: FDA-Public Use
  Company Number: US-ASTRAZENECA-2007AC01011

PATIENT
  Age: 62 Year
  Sex: Male
  Weight: 135 kg

DRUGS (6)
  1. LISINOPRIL [Suspect]
     Indication: HYPERTENSION
  2. SIMVASTATIN [Concomitant]
  3. EZETIMIBE [Concomitant]
  4. AMLODIPINE [Concomitant]
  5. LANSOPRAZOLE [Concomitant]
  6. VALDECOXIB [Concomitant]

REACTIONS (1)
  - HEREDITARY ANGIOEDEMA [None]
